FAERS Safety Report 18875249 (Version 2)
Quarter: 2021Q1

REPORT INFORMATION
  Report Type: Spontaneous
  Country: CZ (occurrence: CZ)
  Receive Date: 20210211
  Receipt Date: 20210220
  Transmission Date: 20210420
  Serious: Yes (Other)
  Sender: FDA-Public Use
  Company Number: CZ-ROCHE-2764952

PATIENT
  Age: 70 Year
  Sex: Male

DRUGS (10)
  1. BEVACIZUMAB. [Suspect]
     Active Substance: BEVACIZUMAB
     Indication: COLON CANCER METASTATIC
     Route: 065
     Dates: end: 201703
  2. REGORAFENIB. [Concomitant]
     Active Substance: REGORAFENIB
     Dates: start: 201802
  3. TRIFLURIDINE. [Concomitant]
     Active Substance: TRIFLURIDINE
     Dates: start: 201806
  4. CAPECITABINE. [Suspect]
     Active Substance: CAPECITABINE
     Indication: COLON CANCER METASTATIC
     Route: 065
     Dates: end: 201303
  5. LEUCOVORIN. [Concomitant]
     Active Substance: LEUCOVORIN
  6. OXALIPLATIN. [Concomitant]
     Active Substance: OXALIPLATIN
     Dates: end: 201303
  7. TIPIRACIL [Concomitant]
     Active Substance: TIPIRACIL
     Dates: start: 201806
  8. 5?FLUOROURACIL [Concomitant]
     Active Substance: FLUOROURACIL
  9. IRINOTECAN [Concomitant]
     Active Substance: IRINOTECAN
  10. CAPECITABINE. [Suspect]
     Active Substance: CAPECITABINE
     Dosage: RESTARED ON SEP/2019
     Route: 065

REACTIONS (2)
  - Renal failure [Unknown]
  - Nephrotic syndrome [Unknown]

NARRATIVE: CASE EVENT DATE: 201703
